FAERS Safety Report 23863888 (Version 1)
Quarter: 2024Q2

REPORT INFORMATION
  Report Type: Spontaneous
  Country: US (occurrence: US)
  Receive Date: 20240516
  Receipt Date: 20240516
  Transmission Date: 20240716
  Serious: Yes (Hospitalization)
  Sender: FDA-Public Use
  Company Number: US-TEVA-VS-3183701

PATIENT
  Age: 58 Year
  Sex: Female

DRUGS (7)
  1. LACTULOSE [Suspect]
     Active Substance: LACTULOSE
     Indication: Product used for unknown indication
     Route: 065
  2. ENULOSE [Suspect]
     Active Substance: LACTULOSE
     Indication: Product used for unknown indication
     Route: 065
  3. OFEV [Suspect]
     Active Substance: NINTEDANIB
     Indication: Idiopathic pulmonary fibrosis
     Dosage: (100 MILLIGRAM(S), 1 IN 12 HOUR)
     Route: 048
  4. OFEV [Suspect]
     Active Substance: NINTEDANIB
     Indication: Idiopathic pulmonary fibrosis
     Dosage: (100 MILLIGRAM(S), 1 IN 1 DAY)
     Route: 048
     Dates: start: 20220803
  5. OFEV [Suspect]
     Active Substance: NINTEDANIB
     Indication: Idiopathic pulmonary fibrosis
     Dosage: (100 MIL!IGRAM(S), 1 IN 48 HOUR)
     Route: 048
     Dates: start: 20221107
  6. OFEV [Suspect]
     Active Substance: NINTEDANIB
     Indication: Idiopathic pulmonary fibrosis
     Dosage: (100 MILLIGRAM(S), 1 IN 8 HOUR)
     Route: 048
     Dates: start: 202212
  7. OFEV [Suspect]
     Active Substance: NINTEDANIB
     Indication: Idiopathic pulmonary fibrosis
     Dosage: (150 MILLIGRAM(S), 1 IN 12 HOUR)
     Route: 048
     Dates: start: 202212

REACTIONS (12)
  - Diarrhoea [Recovered/Resolved]
  - Blood glucose decreased [Recovering/Resolving]
  - Dehydration [Recovering/Resolving]
  - Hepatic enzyme increased [Recovering/Resolving]
  - Liver injury [Unknown]
  - Ammonia increased [Not Recovered/Not Resolved]
  - Nausea [Recovering/Resolving]
  - Vomiting [Recovering/Resolving]
  - Off label use [Unknown]
  - Liver disorder [Unknown]
  - Intentional product use issue [Unknown]
  - Off label use [Unknown]

NARRATIVE: CASE EVENT DATE: 20220806
